FAERS Safety Report 9732997 (Version 1)
Quarter: 2013Q4

REPORT INFORMATION
  Report Type: Spontaneous
  Country: US (occurrence: None)
  Receive Date: 20131204
  Receipt Date: 20131204
  Transmission Date: 20140711
  Serious: Yes (Other)
  Sender: FDA-Public Use
  Company Number: None

PATIENT
  Age: 53 Year
  Sex: Female
  Weight: 58.06 kg

DRUGS (6)
  1. CYMBALTA [Suspect]
     Indication: DEPRESSION
     Dosage: 1 PILL
     Route: 048
     Dates: start: 20131114, end: 20131121
  2. TRAZODONE [Concomitant]
  3. LINZESS [Concomitant]
  4. VENLAFAXINE [Concomitant]
  5. MULTI-VITAMIN [Concomitant]
  6. BABY ASPIRIN [Concomitant]

REACTIONS (3)
  - Neck pain [None]
  - Muscle spasms [None]
  - Sleep disorder [None]
